FAERS Safety Report 10160570 (Version 3)
Quarter: 2014Q2

REPORT INFORMATION
  Report Type: Report from Study
  Country: CA (occurrence: CA)
  Receive Date: 20140508
  Receipt Date: 20140604
  Transmission Date: 20141212
  Serious: Yes (Hospitalization, Other)
  Sender: FDA-Public Use
  Company Number: CA-ABBVIE-11P-028-0726639-00

PATIENT
  Age: 16 Year
  Sex: Female
  Weight: 54.48 kg

DRUGS (5)
  1. HUMIRA 40 MG/0.8 ML PEN [Suspect]
     Indication: CROHN^S DISEASE
     Route: 058
     Dates: start: 20101224, end: 20110429
  2. HUMIRA 40 MG/0.8 ML PEN [Suspect]
     Dosage: INDUCTION DOSE
     Route: 058
     Dates: start: 20140508
  3. DILOTIN [Suspect]
     Indication: PAIN
     Route: 058
     Dates: start: 20110529, end: 20110531
  4. REMICADE [Suspect]
     Indication: CROHN^S DISEASE
     Dates: start: 20110520, end: 20110531
  5. AVIANE [Concomitant]
     Indication: CONTRACEPTION
     Dosage: UNKNOWN
     Route: 048
     Dates: start: 200910

REACTIONS (17)
  - Small intestinal stenosis [Unknown]
  - Drug ineffective [Unknown]
  - Anaphylactic reaction [Recovered/Resolved]
  - Crohn^s disease [Recovering/Resolving]
  - Pain [Recovering/Resolving]
  - Joint swelling [Recovering/Resolving]
  - Peripheral swelling [Recovering/Resolving]
  - Intestinal resection [Unknown]
  - Drug ineffective [Not Recovered/Not Resolved]
  - Fatigue [Unknown]
  - Fatigue [Unknown]
  - Arthralgia [Unknown]
  - Spinal pain [Recovered/Resolved]
  - Nausea [Recovered/Resolved]
  - Musculoskeletal pain [Not Recovered/Not Resolved]
  - Night sweats [Not Recovered/Not Resolved]
  - Inappropriate schedule of drug administration [Recovered/Resolved]
